FAERS Safety Report 7931279-7 (Version None)
Quarter: 2011Q4

REPORT INFORMATION
  Report Type: 
  Country: None (occurrence: None)
  Receive Date: 20111121
  Receipt Date: 20111110
  Transmission Date: 20120403
  Serious: Yes (Death, Hospitalization, Other)
  Sender: FDA-Public Use
  Company Number: US-BAYER-200941101NA

PATIENT
  Age: 59 Year
  Sex: Male
  Weight: 49.887 kg

DRUGS (35)
  1. TRASYLOL [Suspect]
     Indication: CORONARY ARTERY BYPASS
     Dosage: 1 ML, INITIAL DOSE
     Route: 042
     Dates: start: 20001221, end: 20001221
  2. SODIUM BICARBONATE [Concomitant]
     Dosage: CARDIOPULMONARY BYPASS
     Dates: start: 20001221
  3. TRASYLOL [Suspect]
     Indication: AORTIC ANEURYSM REPAIR
     Dosage: 200 ML, CARDIOPULMONARY BYPASS
     Route: 042
     Dates: start: 20001221, end: 20001221
  4. TRASYLOL [Suspect]
     Dosage: 100 ML, LOADING DOSE
     Route: 042
     Dates: start: 20001221, end: 20001221
  5. TRASYLOL [Suspect]
     Dosage: 25 ML/H DRIP
     Route: 041
     Dates: start: 20001222, end: 20001222
  6. CALCIUM CHLORIDE [Concomitant]
     Dosage: CARDIOPULMONARY BYPASS
     Dates: start: 20001221
  7. DIGOXIN [Concomitant]
     Dosage: 0.5 MG
     Route: 042
     Dates: start: 20001221
  8. PROTAMINE SULFATE [Concomitant]
     Dosage: 400 MG, UNK
     Route: 042
     Dates: start: 20001221
  9. MILRINONE [Concomitant]
     Dosage: 4.5 MG, UNK
     Route: 042
     Dates: start: 20001221
  10. RED BLOOD CELLS [Concomitant]
     Dosage: 2 U, DURING RE SURGERY
     Dates: start: 20001222, end: 20001222
  11. CARDURA [Concomitant]
     Dosage: 4 MG DAILY
     Route: 048
     Dates: end: 20050101
  12. FUROSEMIDE [Concomitant]
     Dosage: 20 MG DAILY
     Route: 048
     Dates: end: 20050101
  13. FENTANYL [Concomitant]
     Dosage: 750 ?G, UNK
     Route: 042
     Dates: start: 20001221
  14. TRASYLOL [Suspect]
     Dosage: 25 ML/H DRIP
     Route: 041
     Dates: start: 20001221, end: 20001221
  15. HEPARIN [Concomitant]
     Dosage: 38000 U, CARDIOPULMONARY BYPASS
     Dates: start: 20001221
  16. LASIX [Concomitant]
     Dosage: 40 MG, CARDIOPULMONARY BYPASS
     Dates: start: 20001221
  17. HUMULIN I [Concomitant]
     Dosage: 10 U, CARDIOPULMONARY BYPASS
     Dates: start: 20001221
  18. FRESH FROZEN PLASMA [Concomitant]
     Dosage: 10 U, DURING SURGERY
     Dates: start: 20001221, end: 20001221
  19. DOPAMINE HCL [Concomitant]
     Dosage: DRIP FOR 24 H
     Route: 041
     Dates: start: 20001226
  20. ATENOLOL [Concomitant]
     Dosage: 25 MG, BID
     Route: 048
     Dates: start: 19900101, end: 20050101
  21. VERSED [Concomitant]
     Dosage: 15 MG, UNK
     Route: 042
     Dates: start: 20001221
  22. PHENYLEPHRINE HCL [Concomitant]
     Dosage: UNK UNK, PRN, CARDIOPLUMONARY BYPASS
     Dates: start: 20001221
  23. ANCEF [Concomitant]
     Dosage: 1 G, UNK
     Route: 042
     Dates: start: 20001221
  24. LEVOPHED [Concomitant]
     Dosage: RATE VARIED
     Route: 042
     Dates: start: 20001221
  25. DOPAMINE HCL [Concomitant]
     Dosage: UNK
     Dates: start: 20001221
  26. PREVACID [Concomitant]
     Dosage: 30 MG DAILY
     Route: 048
     Dates: end: 20050101
  27. TRASYLOL [Suspect]
     Dosage: 50 ML/H DRIP
     Route: 041
     Dates: start: 20001221, end: 20001221
  28. MAGNESIUM SULFATE [Concomitant]
     Dosage: CARDIOPULMONARY BYPASS
     Dates: start: 20001221
  29. COUMADIN [Concomitant]
     Dosage: UNK
     Route: 048
     Dates: start: 19900101, end: 20050101
  30. LACTATED RINGER'S [Concomitant]
     Dosage: 3 LITERS
     Route: 042
     Dates: start: 20001221
  31. RED BLOOD CELLS [Concomitant]
     Dosage: 8 U, DURING SURGERY
     Dates: start: 20001221, end: 20001221
  32. PLATELETS [Concomitant]
     Dosage: 3 U, DURING SURGERY
     Dates: start: 20001221, end: 20001221
  33. ULTRAM [Concomitant]
     Dosage: 50 MG TWICE DAILY
     Route: 048
     Dates: end: 20050101
  34. PHENYLEPHRINE HCL [Concomitant]
     Dosage: RATE VARIED
     Route: 042
     Dates: start: 20001221
  35. LIPITOR [Concomitant]
     Dosage: 40 MG DAILY
     Route: 048
     Dates: start: 19900101, end: 20050101

REACTIONS (13)
  - RENAL IMPAIRMENT [None]
  - ANHEDONIA [None]
  - DEATH [None]
  - ANXIETY [None]
  - PAIN [None]
  - RENAL FAILURE ACUTE [None]
  - STRESS [None]
  - MULTI-ORGAN FAILURE [None]
  - EMOTIONAL DISTRESS [None]
  - RENAL INJURY [None]
  - FEAR [None]
  - UNEVALUABLE EVENT [None]
  - INJURY [None]
